FAERS Safety Report 5027649-X (Version None)
Quarter: 2006Q2

REPORT INFORMATION
  Report Type: 
  Country: None (occurrence: None)
  Receive Date: 20060616
  Receipt Date: 20060606
  Transmission Date: 20061013
  Serious: Yes (Death, Other)
  Sender: FDA-Public Use
  Company Number: CH-ABBOTT-06P-151-0335625-00

PATIENT

DRUGS (1)
  1. VALPROIC ACID [Suspect]
     Indication: CONVULSION
     Dosage: LOADING DOSE

REACTIONS (2)
  - HAEMORRHAGE INTRACRANIAL [None]
  - PLATELET FUNCTION TEST ABNORMAL [None]
